FAERS Safety Report 11503574 (Version 2)
Quarter: 2016Q1

REPORT INFORMATION
  Report Type: Spontaneous
  Country: FR (occurrence: FR)
  Receive Date: 20150914
  Receipt Date: 20160201
  Transmission Date: 20160525
  Serious: Yes (Hospitalization, Other)
  Sender: FDA-Public Use
  Company Number: FR-MYLANLABS-2015M1029732

PATIENT

DRUGS (1)
  1. ATOVAQUONE,PROGUANIL MYLAN [Suspect]
     Active Substance: ATOVAQUONE\PROGUANIL
     Indication: PROPHYLACTIC CHEMOTHERAPY
     Dosage: 1 DF, QD
     Route: 048
     Dates: start: 20150501, end: 20150505

REACTIONS (8)
  - Suicidal ideation [Recovering/Resolving]
  - Anxiety [None]
  - Panic disorder [Recovering/Resolving]
  - Myocardial infarction [None]
  - Insomnia [Recovering/Resolving]
  - Rapid eye movements sleep abnormal [None]
  - Decreased appetite [Recovering/Resolving]
  - Nightmare [None]

NARRATIVE: CASE EVENT DATE: 20150502
